FAERS Safety Report 8537170-X (Version None)
Quarter: 2012Q3

REPORT INFORMATION
  Report Type: 
  Country: None (occurrence: None)
  Receive Date: 20120725
  Receipt Date: 20120719
  Transmission Date: 20120928
  Serious: Yes (Other)
  Sender: FDA-Public Use
  Company Number: GB-BRISTOL-MYERS SQUIBB COMPANY-16784001

PATIENT
  Age: 55 Year
  Sex: Male

DRUGS (1)
  1. ABILIFY [Suspect]
     Indication: SCHIZOPHRENIA, PARANOID TYPE
     Dosage: ABILIFY:15MG-2010
     Route: 048
     Dates: start: 20100601, end: 20100101

REACTIONS (3)
  - SCHIZOPHRENIA, PARANOID TYPE [None]
  - AKATHISIA [None]
  - EXTRAPYRAMIDAL DISORDER [None]
